FAERS Safety Report 7202848-7 (Version None)
Quarter: 2010Q4

REPORT INFORMATION
  Report Type: 
  Country: None (occurrence: None)
  Receive Date: 20101229
  Receipt Date: 20101220
  Transmission Date: 20110411
  Serious: Yes (Other)
  Sender: FDA-Public Use
  Company Number: NO-PFIZER INC-2010132285

PATIENT
  Age: 31 Year
  Sex: Male

DRUGS (2)
  1. LYRICA [Suspect]
     Indication: SOCIAL PHOBIA
     Dosage: 300 MG, 2X/DAY
     Dates: start: 20040101
  2. SOBRIL [Concomitant]
     Indication: SOCIAL PHOBIA
     Dosage: 10 MG, AS NEEDED

REACTIONS (3)
  - ANXIETY [None]
  - FEELING ABNORMAL [None]
  - WITHDRAWAL SYNDROME [None]
